FAERS Safety Report 4339188-X (Version None)
Quarter: 2004Q2

REPORT INFORMATION
  Report Type: 
  Country: None (occurrence: None)
  Receive Date: 20040412
  Receipt Date: 20420330
  Transmission Date: 20050107
  Serious: Yes (Other)
  Sender: FDA-Public Use
  Company Number: 2002134463US

PATIENT
  Age: 48 Year
  Sex: Female
  Weight: 68 kg

DRUGS (3)
  1. BEXTRA [Suspect]
     Dosage: 10 MG, QD, ORAL
     Route: 048
     Dates: start: 20021001
  2. WELLBUTRIN [Concomitant]
  3. PROCARDIA [Concomitant]

REACTIONS (4)
  - DERMATITIS EXFOLIATIVE [None]
  - DRY SKIN [None]
  - RASH SCALY [None]
  - SKIN DISORDER [None]
